FAERS Safety Report 7424085-3 (Version None)
Quarter: 2011Q2

REPORT INFORMATION
  Report Type: 
  Country: None (occurrence: None)
  Receive Date: 20110419
  Receipt Date: 20110411
  Transmission Date: 20111010
  Serious: Yes (Other)
  Sender: FDA-Public Use
  Company Number: PHHY2011AU29708

PATIENT
  Age: 50 Year
  Sex: Female

DRUGS (7)
  1. WARFARIN [Suspect]
  2. CALCIUM [Concomitant]
  3. OESTRIOL ^NM PHARMA^ [Concomitant]
  4. FLECAINIDE ACETATE [Concomitant]
  5. FRUSEMIDE [Concomitant]
  6. SERTRALINE [Interacting]
  7. POTASSIUM CHLORIDE [Concomitant]

REACTIONS (3)
  - HAEMORRHAGE [None]
  - DRUG INTERACTION [None]
  - DEEP VEIN THROMBOSIS [None]
